FAERS Safety Report 4569601-4 (Version None)
Quarter: 2005Q1

REPORT INFORMATION
  Report Type: 
  Country: None (occurrence: None)
  Receive Date: 20050201
  Receipt Date: 20050124
  Transmission Date: 20050727
  Serious: Yes (Life-Threatening)
  Sender: FDA-Public Use
  Company Number: 2005AC00150

PATIENT
  Sex: Male

DRUGS (1)
  1. LIDOCAINE + PRILOCAINE [Suspect]
     Indication: LOCAL ANAESTHESIA
     Dosage: 2.55 LIDOCAINE 2.5% PRILOCAINE

REACTIONS (13)
  - ANAESTHETIC COMPLICATION [None]
  - BRADYCARDIA NEONATAL [None]
  - CONVULSION NEONATAL [None]
  - DRUG EXPOSURE DURING PREGNANCY [None]
  - DRUG TOXICITY [None]
  - GRAND MAL CONVULSION [None]
  - HYPERTONIA [None]
  - HYPERTONIA NEONATAL [None]
  - HYPOTONIA NEONATAL [None]
  - METABOLIC ACIDOSIS [None]
  - MYDRIASIS [None]
  - NEONATAL APNOEIC ATTACK [None]
  - NERVOUS SYSTEM DISORDER [None]
